FAERS Safety Report 25847764 (Version 1)
Quarter: 2025Q3

REPORT INFORMATION
  Report Type: Report from Study
  Country: US (occurrence: US)
  Receive Date: 20250925
  Receipt Date: 20250925
  Transmission Date: 20251021
  Serious: No
  Sender: ACADIA PHARMACEUTICALS
  Company Number: US-ACADIA PHARMACEUTICALS INC.-ACA-2025-PIM-010498

PATIENT
  Sex: Female

DRUGS (23)
  1. NUPLAZID [Suspect]
     Active Substance: PIMAVANSERIN TARTRATE
     Indication: Parkinson^s disease psychosis
     Dosage: 34 MILLIGRAM, TAKE ONE CAPSULE BY MOUTH EVERY NIGHT AT BEDTIME
     Route: 048
     Dates: start: 20230307
  2. AZITHROMYCIN [Concomitant]
     Active Substance: AZITHROMYCIN
  3. BUSPIRONE [Concomitant]
     Active Substance: BUSPIRONE HYDROCHLORIDE
  4. CARBIDOPA [Concomitant]
     Active Substance: CARBIDOPA
  5. CLONAZEPAM [Concomitant]
     Active Substance: CLONAZEPAM
  6. CLONAZEPAM [Concomitant]
     Active Substance: CLONAZEPAM
  7. DONEPEZIL [Concomitant]
     Active Substance: DONEPEZIL
  8. ERYTHROMYCIN [Concomitant]
     Active Substance: ERYTHROMYCIN
  9. ESCITALOPRAM [Concomitant]
     Active Substance: ESCITALOPRAM OXALATE
  10. FLUTICASONE [Concomitant]
     Active Substance: FLUTICASONE
  11. LEXAPRO [Concomitant]
     Active Substance: ESCITALOPRAM OXALATE
  12. LISINOPRIL [Concomitant]
     Active Substance: LISINOPRIL
  13. LISINOPRIL [Concomitant]
     Active Substance: LISINOPRIL
  14. MIRTAZAPINE [Concomitant]
     Active Substance: MIRTAZAPINE
  15. NORTHERA [Concomitant]
     Active Substance: DROXIDOPA
  16. NOURIANZ [Concomitant]
     Active Substance: ISTRADEFYLLINE
  17. PROMETHAZINE [Concomitant]
     Active Substance: PROMETHAZINE HYDROCHLORIDE
  18. QUETIAPINE [Concomitant]
     Active Substance: QUETIAPINE
  19. RASAGILINE [Concomitant]
     Active Substance: RASAGILINE
  20. RASAGILINE [Concomitant]
     Active Substance: RASAGILINE
  21. RIVASTIGMINE [Concomitant]
     Active Substance: RIVASTIGMINE
  22. RYTARY [Concomitant]
     Active Substance: CARBIDOPA\LEVODOPA
  23. TRIAMCINOLONE [Concomitant]
     Active Substance: TRIAMCINOLONE

REACTIONS (2)
  - Gastrostomy [Not Recovered/Not Resolved]
  - Product administration error [Not Recovered/Not Resolved]
